FAERS Safety Report 17107775 (Version 8)
Quarter: 2025Q1

REPORT INFORMATION
  Report Type: Spontaneous
  Country: US (occurrence: US)
  Receive Date: 20191204
  Receipt Date: 20250131
  Transmission Date: 20250409
  Serious: Yes (Other)
  Sender: ELI LILLY AND COMPANY
  Company Number: US-ELI_LILLY_AND_COMPANY-US201903012771

PATIENT
  Age: 70 Year
  Sex: Female

DRUGS (3)
  1. HUMALOG MIX75/25 [Suspect]
     Active Substance: INSULIN LISPRO
     Indication: Diabetes mellitus
     Dosage: 24 U, BID (100U/ML)
     Route: 065
     Dates: start: 20190325
  2. HUMALOG MIX75/25 [Suspect]
     Active Substance: INSULIN LISPRO
     Dosage: 300 U, BID (5 TO 300 UNIT)
     Route: 065
  3. HUMALOG [Suspect]
     Active Substance: INSULIN LISPRO
     Indication: Diabetes mellitus
     Dosage: 24 U, BID (BEFORE BREAKFAST AND DINNER)
     Route: 065

REACTIONS (11)
  - Sciatica [Recovering/Resolving]
  - Intervertebral disc protrusion [Unknown]
  - Back disorder [Unknown]
  - Gait disturbance [Unknown]
  - Visual impairment [Unknown]
  - Nephrolithiasis [Unknown]
  - Pain [Unknown]
  - Fatigue [Unknown]
  - Irritability [Unknown]
  - Blood pressure increased [Unknown]
  - Dry mouth [Unknown]

NARRATIVE: CASE EVENT DATE: 20200101
